FAERS Safety Report 7298733-5 (Version None)
Quarter: 2011Q1

REPORT INFORMATION
  Report Type: 
  Country: None (occurrence: None)
  Receive Date: 20110217
  Receipt Date: 20110217
  Transmission Date: 20110831
  Serious: Yes (Hospitalization, Other)
  Sender: FDA-Public Use
  Company Number: US-JNJFOC-20110105361

PATIENT
  Sex: Female
  Weight: 56.7 kg

DRUGS (1)
  1. SIMPONI [Suspect]
     Indication: PRODUCT USED FOR UNKNOWN INDICATION
     Dosage: THREE DOSES
     Route: 058

REACTIONS (2)
  - UROSEPSIS [None]
  - MENTAL STATUS CHANGES [None]
